FAERS Safety Report 9619532 (Version 4)
Quarter: 2013Q4

REPORT INFORMATION
  Report Type: Spontaneous
  Country: FR (occurrence: FR)
  Receive Date: 20131014
  Receipt Date: 20131210
  Transmission Date: 20140711
  Serious: Yes (Death, Other)
  Sender: FDA-Public Use
  Company Number: FR-PFIZER INC-2013291504

PATIENT
  Age: 23 Year
  Sex: Male

DRUGS (3)
  1. EFFEXOR LP [Suspect]
     Indication: DEPRESSION
     Dosage: 75 MG, 2X/DAY
     Route: 048
     Dates: start: 201301, end: 201305
  2. EFFEXOR LP [Suspect]
     Dosage: 75 MG, 3X/DAY
     Route: 048
     Dates: start: 201305
  3. LYSANXIA [Concomitant]
     Indication: DEPRESSION
     Dosage: 10 MG 1/2 DOSE IN THE MORNING AND 1/2 DOSE IN THE EVENING
     Route: 048
     Dates: start: 201302

REACTIONS (8)
  - Completed suicide [Fatal]
  - Suicidal ideation [Fatal]
  - Anxiety [Unknown]
  - Nervousness [Unknown]
  - Headache [Unknown]
  - Negative thoughts [Unknown]
  - Nightmare [Unknown]
  - Abdominal pain [Unknown]
